FAERS Safety Report 20733582 (Version 1)
Quarter: 2022Q2

REPORT INFORMATION
  Report Type: Spontaneous
  Country: SI (occurrence: SI)
  Receive Date: 20220421
  Receipt Date: 20220421
  Transmission Date: 20220721
  Serious: Yes (Hospitalization, Other)
  Sender: FDA-Public Use
  Company Number: None

PATIENT
  Age: 72 Year
  Sex: Male

DRUGS (9)
  1. IPILIMUMAB [Suspect]
     Active Substance: IPILIMUMAB
     Indication: Renal cancer metastatic
     Route: 065
     Dates: start: 20211217, end: 20220112
  2. NIVOLUMAB [Suspect]
     Active Substance: NIVOLUMAB
     Indication: Renal cancer metastatic
     Route: 065
     Dates: start: 20211217, end: 20220112
  3. BISOPROLOL FUMARATE [Concomitant]
     Active Substance: BISOPROLOL FUMARATE
     Indication: Product used for unknown indication
     Dosage: 1,25MG/DAY
  4. Nephrotrans 500 MG [Concomitant]
     Indication: Product used for unknown indication
     Dosage: 3X 500MG / DAY
     Route: 065
  5. Atoris 40 MG [Concomitant]
     Indication: Product used for unknown indication
     Dosage: 40MG / DAY
     Route: 065
  6. Valsacor 80 Mg [Concomitant]
     Indication: Product used for unknown indication
     Dosage: IN THE MORNING 80MG / DAY
     Route: 065
  7. ALLOPURINOL [Concomitant]
     Active Substance: ALLOPURINOL
     Indication: Product used for unknown indication
     Dosage: 2 TBL/DAY
     Route: 048
  8. Acipan 40 MG [Concomitant]
     Indication: Product used for unknown indication
     Dosage: 40MG / DAY
     Route: 065
  9. ACETAMINOPHEN\TRAMADOL HYDROCHLORIDE [Concomitant]
     Active Substance: ACETAMINOPHEN\TRAMADOL HYDROCHLORIDE
     Indication: Product used for unknown indication
     Dosage: UP TO 3 TIMES 2 TBL / DAY
     Route: 065

REACTIONS (2)
  - Acute motor axonal neuropathy [Recovered/Resolved]
  - Paraparesis [Recovered/Resolved]

NARRATIVE: CASE EVENT DATE: 20220131
